FAERS Safety Report 13743113 (Version 1)
Quarter: 2017Q3

REPORT INFORMATION
  Report Type: Spontaneous
  Country: DE (occurrence: DE)
  Receive Date: 20170711
  Receipt Date: 20170711
  Transmission Date: 20171127
  Serious: Yes (Death, Life-Threatening, Hospitalization)
  Sender: FDA-Public Use
  Company Number: DE-JNJFOC-20170526135

PATIENT
  Age: 84 Year
  Sex: Male
  Weight: 86 kg

DRUGS (6)
  1. XARELTO [Suspect]
     Active Substance: RIVAROXABAN
     Indication: DEEP VEIN THROMBOSIS
     Route: 048
     Dates: start: 20170421, end: 20170423
  2. CLEXANE [Concomitant]
     Active Substance: ENOXAPARIN SODIUM
     Dates: end: 20170421
  3. PREDNISOLONE. [Concomitant]
     Active Substance: PREDNISOLONE
  4. METOHEXAL [Concomitant]
     Active Substance: METOPROLOL SUCCINATE
  5. RAMIPRIL. [Concomitant]
     Active Substance: RAMIPRIL
  6. KATADOLON [Concomitant]
     Active Substance: FLUPIRTINE

REACTIONS (3)
  - Pulmonary embolism [Fatal]
  - Gastrointestinal haemorrhage [Unknown]
  - Gastric haemorrhage [Fatal]

NARRATIVE: CASE EVENT DATE: 20170422
